FAERS Safety Report 8397801-4 (Version None)
Quarter: 2012Q2

REPORT INFORMATION
  Report Type: 
  Country: None (occurrence: None)
  Receive Date: 20120524
  Receipt Date: 20120511
  Transmission Date: 20120825
  Serious: Yes (Hospitalization, Other)
  Sender: FDA-Public Use
  Company Number: 2012SP025516

PATIENT
  Sex: Female

DRUGS (3)
  1. PEG-INTRON [Suspect]
     Indication: HEPATITIS C
     Dates: start: 20120224, end: 20120415
  2. RIBAVIRIN [Suspect]
     Indication: HEPATITIS C
     Dates: start: 20120224, end: 20120415
  3. VICTRELIS [Suspect]
     Indication: HEPATITIS C
     Dates: start: 20120323, end: 20120415

REACTIONS (9)
  - PANCREATITIS [None]
  - CHOLELITHIASIS [None]
  - PYREXIA [None]
  - HAEMORRHAGE [None]
  - ASTHENIA [None]
  - PAIN [None]
  - HYPOTENSION [None]
  - INFECTION [None]
  - DIZZINESS [None]
